FAERS Safety Report 5190470-6 (Version None)
Quarter: 2006Q4

REPORT INFORMATION
  Report Type: 
  Country: None (occurrence: None)
  Receive Date: 20061222
  Receipt Date: 20061214
  Transmission Date: 20070319
  Serious: Yes (Hospitalization)
  Sender: FDA-Public Use
  Company Number: GB-ROCHE-475003

PATIENT
  Age: 57 Year
  Sex: Male
  Weight: 80.4 kg

DRUGS (14)
  1. CAPECITABINE [Suspect]
     Dosage: GIVEN FOR 14 DAYS FOLLOWED BY A WEEK REST (3 WEEK CYCLE).
     Route: 048
     Dates: start: 20040730, end: 20040815
  2. GEMCITABINE [Suspect]
     Dosage: GIVEN ON DAYS ONE AND EIGHT OF A THREE WEEK CYCLE.
     Route: 042
     Dates: start: 20040729, end: 20040729
  3. GEMCITABINE [Suspect]
     Dosage: GIVEN ON DAYS ONE AND EIGHT OF A THREE WEEK CYCLE.
     Route: 042
     Dates: start: 20040806, end: 20040806
  4. GEMCITABINE [Suspect]
     Dosage: GIVEN ON DAYS ONE AND EIGHT OF A THREE WEEK CYCLE.
     Route: 042
     Dates: start: 20040813, end: 20040813
  5. GRANISETRON [Concomitant]
     Indication: ANTIEMETIC SUPPORTIVE CARE
     Dosage: GRANISETRON WAS ADMINISTERED ON 29 JUL 2004, 06 AUG 2004 AND ON 13 AUG 2004.
     Route: 042
     Dates: start: 20040729, end: 20040813
  6. DEXAMETHASONE [Concomitant]
     Dosage: DEXAMETHASONE WAS ADMINISTERED ON 29 JUL 2004, 06 AUG 2004 AND ON 13 AUG 2004.
     Route: 042
     Dates: start: 20040729, end: 20040813
  7. FERROUS SULFATE TAB [Concomitant]
     Route: 048
     Dates: start: 20040821
  8. VERAPAMIL [Concomitant]
     Indication: CARDIAC DISORDER
     Route: 048
     Dates: start: 20040821
  9. FLECAINIDE ACETATE [Concomitant]
     Route: 048
     Dates: start: 20040821
  10. LANSOPRAZOLE [Concomitant]
     Route: 048
     Dates: start: 20040821
  11. TRAMADOL HCL [Concomitant]
     Route: 048
     Dates: start: 20040821
  12. TINZAPARIN [Concomitant]
     Route: 058
     Dates: start: 20040821
  13. CREON [Concomitant]
     Route: 048
     Dates: start: 20040821
  14. DICLOFENAC SODIUM [Concomitant]
     Route: 048
     Dates: start: 20040821

REACTIONS (4)
  - DECREASED APPETITE [None]
  - FATIGUE [None]
  - FLUID INTAKE REDUCED [None]
  - HAEMOGLOBIN DECREASED [None]
